FAERS Safety Report 17926053 (Version 1)
Quarter: 2020Q2

REPORT INFORMATION
  Report Type: Report from Study
  Country: BR (occurrence: BR)
  Receive Date: 20200622
  Receipt Date: 20200622
  Transmission Date: 20200714
  Serious: Yes (Hospitalization)
  Sender: FDA-Public Use
  Company Number: BR-JNJFOC-20200618185

PATIENT
  Age: 54 Year
  Sex: Female
  Weight: 80 kg

DRUGS (1)
  1. STELARA [Suspect]
     Active Substance: USTEKINUMAB
     Indication: CROHN^S DISEASE
     Route: 058
     Dates: start: 20200206

REACTIONS (6)
  - Thrombosis [Unknown]
  - Pyoderma [Unknown]
  - Embolism [Unknown]
  - COVID-19 [Recovered/Resolved]
  - Rectal fissure [Unknown]
  - Dermatitis [Unknown]

NARRATIVE: CASE EVENT DATE: 20200314
